FAERS Safety Report 24248025 (Version 1)
Quarter: 2024Q3

REPORT INFORMATION
  Report Type: Spontaneous
  Country: FR (occurrence: FR)
  Receive Date: 20240826
  Receipt Date: 20240826
  Transmission Date: 20241016
  Serious: Yes (Other)
  Sender: AUROBINDO
  Company Number: FR-AFSSAPS-AVNY2024000228

PATIENT
  Age: 53 Year
  Sex: Male
  Weight: 60 kg

DRUGS (7)
  1. ACETAMINOPHEN [Suspect]
     Active Substance: ACETAMINOPHEN
     Indication: Product used for unknown indication
     Dosage: 4-5 G
     Route: 065
     Dates: start: 20240619, end: 20240619
  2. CANNABIS SATIVA SUBSP. INDICA TOP [Suspect]
     Active Substance: CANNABIS SATIVA SUBSP. INDICA TOP
     Indication: Product used for unknown indication
     Dosage: UNK
     Dates: start: 20240619, end: 20240619
  3. COCAINE [Suspect]
     Active Substance: COCAINE
     Indication: Product used for unknown indication
     Dosage: UNK
     Route: 045
     Dates: start: 20240619, end: 20240619
  4. COCAINE [Suspect]
     Active Substance: COCAINE
     Dosage: 7-8 G CONSUMES TWO THROUGHOUT THE DAY, MAINLY SMOKES AND SNORTS
     Dates: start: 20240619, end: 20240619
  5. HEROIN [Suspect]
     Active Substance: DIAMORPHINE
     Indication: Product used for unknown indication
     Dosage: SPEED BALL : HEROINE + COCAINE IN UNKNOWN QUANTITY
     Route: 065
     Dates: start: 20240619, end: 20240619
  6. BROMAZEPAM [Suspect]
     Active Substance: BROMAZEPAM
     Indication: Product used for unknown indication
     Dosage: 1 DOSAGE FORM
     Route: 065
     Dates: start: 20240619, end: 20240619
  7. METHADONE [Suspect]
     Active Substance: METHADONE HYDROCHLORIDE
     Indication: Product used for unknown indication
     Dosage: 60 MILLIGRAM
     Route: 065
     Dates: start: 20240619, end: 20240619

REACTIONS (4)
  - Substance use disorder [Unknown]
  - Toxicity to various agents [Unknown]
  - Hypertension [Unknown]
  - Tachycardia [Unknown]

NARRATIVE: CASE EVENT DATE: 20240619
